FAERS Safety Report 4431559-6 (Version None)
Quarter: 2004Q3

REPORT INFORMATION
  Report Type: 
  Country: None (occurrence: None)
  Receive Date: 20040726
  Receipt Date: 20040517
  Transmission Date: 20050211
  Serious: Yes (Other)
  Sender: FDA-Public Use
  Company Number: USA040464124

PATIENT
  Age: 59 Year
  Sex: Female

DRUGS (2)
  1. EVISTA [Suspect]
     Indication: OSTEOPOROSIS
  2. FORTEO [Suspect]
     Indication: OSTEOPOROSIS
     Dates: start: 20031001

REACTIONS (5)
  - BONE DENSITY DECREASED [None]
  - BONE PAIN [None]
  - FALL [None]
  - JOINT SWELLING [None]
  - MULTIPLE FRACTURES [None]
